FAERS Safety Report 21172189 (Version 1)
Quarter: 2022Q3

REPORT INFORMATION
  Report Type: Report from Study
  Country: AU (occurrence: AU)
  Receive Date: 20220804
  Receipt Date: 20220804
  Transmission Date: 20221026
  Serious: Yes (Hospitalization)
  Sender: FDA-Public Use
  Company Number: AU-ABBVIE-22K-008-4492153-00

PATIENT
  Age: 54 Year
  Sex: Female

DRUGS (1)
  1. SKYRIZI [Suspect]
     Active Substance: RISANKIZUMAB-RZAA
     Indication: Psoriasis
     Route: 058
     Dates: start: 20220512

REACTIONS (1)
  - Asthma [Recovering/Resolving]

NARRATIVE: CASE EVENT DATE: 20220701
